FAERS Safety Report 10851844 (Version 1)
Quarter: 2015Q1

REPORT INFORMATION
  Report Type: Spontaneous
  Country: US (occurrence: US)
  Receive Date: 20150222
  Receipt Date: 20150222
  Transmission Date: 20150721
  Serious: No
  Sender: FDA-Public Use
  Company Number: US-ALLERGAN-1412994US

PATIENT
  Age: 27 Year
  Sex: Female

DRUGS (1)
  1. BOTOX [Suspect]
     Active Substance: ONABOTULINUMTOXINA
     Indication: TORTICOLLIS
     Dosage: 150 UNITS, SINGLE
     Dates: start: 20140530, end: 20140530

REACTIONS (6)
  - Migraine [Recovered/Resolved]
  - Dysphagia [Recovering/Resolving]
  - Muscular weakness [Recovering/Resolving]
  - Dyspnoea [Recovered/Resolved]
  - Drug ineffective [Unknown]
  - Vision blurred [Recovered/Resolved]
